FAERS Safety Report 7665616-8 (Version None)
Quarter: 2011Q3

REPORT INFORMATION
  Report Type: 
  Country: None (occurrence: None)
  Receive Date: 20110806
  Receipt Date: 20110714
  Transmission Date: 20111222
  Serious: No
  Sender: FDA-Public Use
  Company Number: US-ABBOTT-11P-163-0839188-00

PATIENT
  Sex: Male
  Weight: 73.548 kg

DRUGS (8)
  1. SIMVASTATIN [Suspect]
     Indication: PRODUCT USED FOR UNKNOWN INDICATION
  2. SIMVASTATIN [Suspect]
  3. NIASPAN [Suspect]
  4. NIASPAN [Suspect]
     Indication: PRODUCT USED FOR UNKNOWN INDICATION
     Dates: start: 20070101
  5. NIASPAN [Suspect]
  6. NIASPAN [Suspect]
  7. FISH OIL [Concomitant]
     Indication: PRODUCT USED FOR UNKNOWN INDICATION
  8. ASPIRIN [Concomitant]
     Indication: PRODUCT USED FOR UNKNOWN INDICATION

REACTIONS (4)
  - MYALGIA [None]
  - LIVER FUNCTION TEST ABNORMAL [None]
  - PLASTIC SURGERY TO THE FACE [None]
  - ASTHENIA [None]
